FAERS Safety Report 7280757-5 (Version None)
Quarter: 2011Q1

REPORT INFORMATION
  Report Type: 
  Country: None (occurrence: None)
  Receive Date: 20110208
  Receipt Date: 20110128
  Transmission Date: 20110831
  Serious: Yes (Other)
  Sender: FDA-Public Use
  Company Number: JP-JNJFOC-20110103500

PATIENT
  Sex: Male
  Weight: 68 kg

DRUGS (20)
  1. REMICADE [Suspect]
     Route: 042
  2. CALCIUM ASPARTATE [Concomitant]
     Indication: HYPONATRAEMIA
     Route: 048
  3. ATARAX [Concomitant]
     Indication: ABDOMINAL PAIN
     Route: 042
  4. REMICADE [Suspect]
     Indication: CROHN'S DISEASE
     Route: 042
  5. REMICADE [Suspect]
     Route: 042
  6. REMICADE [Suspect]
     Route: 042
  7. REMICADE [Suspect]
     Route: 042
  8. REMICADE [Suspect]
     Dosage: 8 INFUSIONS (UNSPECIFIED DATES)
     Route: 042
  9. REMICADE [Suspect]
     Route: 042
  10. BUSCOPAN [Concomitant]
     Indication: ABDOMINAL PAIN
     Route: 042
  11. REMICADE [Suspect]
     Route: 042
  12. REMICADE [Suspect]
     Route: 042
  13. REMICADE [Suspect]
     Route: 042
  14. REMICADE [Suspect]
     Route: 042
  15. HALCION [Concomitant]
     Indication: INSOMNIA
     Route: 048
  16. REMICADE [Suspect]
     Route: 042
  17. FAMOSTAGINE-D [Concomitant]
     Indication: GASTRITIS
     Route: 048
  18. PREDONINE [Concomitant]
     Indication: CROHN'S DISEASE
     Route: 048
  19. BIO-THREE [Concomitant]
     Indication: DIARRHOEA
     Route: 048
  20. PENTASA [Concomitant]
     Indication: CROHN'S DISEASE
     Route: 048

REACTIONS (5)
  - LOSS OF CONSCIOUSNESS [None]
  - PYREXIA [None]
  - DELIRIUM [None]
  - DEPRESSED LEVEL OF CONSCIOUSNESS [None]
  - ROAD TRAFFIC ACCIDENT [None]
